FAERS Safety Report 21706438 (Version 3)
Quarter: 2023Q1

REPORT INFORMATION
  Report Type: Spontaneous
  Country: JP (occurrence: JP)
  Receive Date: 20221209
  Receipt Date: 20230103
  Transmission Date: 20230417
  Serious: Yes (Other)
  Sender: FDA-Public Use
  Company Number: JP-OTSUKA-2022_053862

PATIENT
  Age: 47 Year
  Sex: Female

DRUGS (8)
  1. ABILIFY [Suspect]
     Active Substance: ARIPIPRAZOLE
     Indication: Product used for unknown indication
     Dosage: 12 MG, UNK
     Route: 065
  2. LAMOTRIGINE [Concomitant]
     Active Substance: LAMOTRIGINE
     Indication: Product used for unknown indication
     Dosage: 225 MG, UNK
     Route: 065
  3. LAMOTRIGINE [Concomitant]
     Active Substance: LAMOTRIGINE
     Dosage: 200 MG, UNK
     Route: 065
  4. OLANZAPINE [Concomitant]
     Active Substance: OLANZAPINE
     Indication: Product used for unknown indication
     Dosage: 10 MG, UNK
     Route: 065
  5. LITHIUM CARBONATE [Concomitant]
     Active Substance: LITHIUM CARBONATE
     Indication: Product used for unknown indication
     Dosage: 800 MG, UNK
     Route: 065
  6. BLONANSERIN [Concomitant]
     Active Substance: BLONANSERIN
     Indication: Product used for unknown indication
     Dosage: 24 MG, UNK
     Route: 065
     Dates: end: 2022
  7. BLONANSERIN [Concomitant]
     Active Substance: BLONANSERIN
     Dosage: 8 MG, UNK
     Route: 065
     Dates: start: 2022
  8. ZOTEPINE [Concomitant]
     Active Substance: ZOTEPINE
     Indication: Product used for unknown indication
     Dosage: 25MG, UNK
     Route: 065
     Dates: end: 2022

REACTIONS (6)
  - Hallucination, auditory [Unknown]
  - Persecutory delusion [Unknown]
  - Mania [Unknown]
  - Depression [Recovering/Resolving]
  - Gambling disorder [Unknown]
  - Treatment noncompliance [Unknown]
